FAERS Safety Report 24784225 (Version 1)
Quarter: 2024Q4

REPORT INFORMATION
  Report Type: Spontaneous
  Country: JP (occurrence: JP)
  Receive Date: 20241227
  Receipt Date: 20241227
  Transmission Date: 20250115
  Serious: Yes (Death)
  Sender: ELI LILLY AND COMPANY
  Company Number: JP-ELI_LILLY_AND_COMPANY-JP202412014032AA

PATIENT
  Age: 75 Year
  Sex: Male

DRUGS (1)
  1. RETEVMO [Suspect]
     Active Substance: SELPERCATINIB
     Indication: Neoplasm
     Dosage: 160 MG, BID
     Route: 048
     Dates: start: 20241113

REACTIONS (2)
  - Drug-induced liver injury [Fatal]
  - Hypersensitivity [Recovering/Resolving]
